FAERS Safety Report 7613253-3 (Version None)
Quarter: 2011Q3

REPORT INFORMATION
  Report Type: 
  Country: None (occurrence: None)
  Receive Date: 20110708
  Receipt Date: 20110624
  Transmission Date: 20111222
  Serious: Yes (Life-Threatening)
  Sender: FDA-Public Use
  Company Number: 1000021906

PATIENT
  Age: 91 Year
  Sex: Female

DRUGS (6)
  1. BISOPROLOL FUMARATE [Suspect]
     Dosage: 7.5 MG (7.5 MG, 1 IN 1 D), ORAL
     Route: 048
     Dates: end: 20110512
  2. FUROSEMIDE [Concomitant]
  3. COUMADINE (WARFARIN SODIUM) (WARFARIN SODIUM) [Concomitant]
  4. MEMANTINE HYDROCHLORIDE [Suspect]
     Indication: DEMENTIA ALZHEIMER'S TYPE
     Dosage: 20 MG (10 MG, 2 IN 1 D), ORAL
     Route: 048
     Dates: start: 20101001, end: 20110501
  5. HEMIGOXINE NATIVELLE (DIGOXIN) (TABLETS) (DIGOXIN) [Concomitant]
  6. MONICOR (ISOSORBIDE MONONITRATE) (ISOSORBIDE MONONITRATE) [Concomitant]

REACTIONS (5)
  - BRONCHOSPASM [None]
  - JOINT INJURY [None]
  - CARDIAC FAILURE [None]
  - RIGHT VENTRICULAR FAILURE [None]
  - FALL [None]
